FAERS Safety Report 24208227 (Version 1)
Quarter: 2024Q3

REPORT INFORMATION
  Report Type: Spontaneous
  Country: ZA (occurrence: None)
  Receive Date: 20240814
  Receipt Date: 20240814
  Transmission Date: 20241017
  Serious: Yes (Hospitalization)
  Sender: ASTRAZENECA
  Company Number: 2024A178672

PATIENT
  Age: 81 Year
  Sex: Female

DRUGS (7)
  1. DAPAGLIFLOZIN PROPANEDIOL [Suspect]
     Active Substance: DAPAGLIFLOZIN PROPANEDIOL
     Route: 048
  2. CARVEDILOL [Concomitant]
     Active Substance: CARVEDILOL
  3. ALLOPURINOL [Concomitant]
     Active Substance: ALLOPURINOL
  4. SPIRACTIN [Concomitant]
  5. RIVAROXABAN [Concomitant]
     Active Substance: RIVAROXABAN
  6. SACUBITRIL\VALSARTAN [Concomitant]
     Active Substance: SACUBITRIL\VALSARTAN
  7. FUROSEMIDE [Concomitant]
     Active Substance: FUROSEMIDE

REACTIONS (3)
  - Cardiac disorder [Unknown]
  - Colitis ulcerative [Unknown]
  - Diverticulitis [Unknown]
